FAERS Safety Report 16805084 (Version 2)
Quarter: 2020Q2

REPORT INFORMATION
  Report Type: Report from Study
  Country: CA (occurrence: CA)
  Receive Date: 20190913
  Receipt Date: 20200514
  Transmission Date: 20200713
  Serious: Yes (Hospitalization)
  Sender: FDA-Public Use
  Company Number: CA-AMGEN-CANNI2019150360

PATIENT
  Age: 69 Year
  Sex: Female

DRUGS (1)
  1. AIMOVIG [Suspect]
     Active Substance: ERENUMAB-AOOE
     Indication: MIGRAINE
     Dosage: 70 MG, QMO
     Route: 058
     Dates: start: 20190308, end: 20200508

REACTIONS (1)
  - Depression [Unknown]

NARRATIVE: CASE EVENT DATE: 20190308
